FAERS Safety Report 7444810-5 (Version None)
Quarter: 2011Q2

REPORT INFORMATION
  Report Type: 
  Country: None (occurrence: None)
  Receive Date: 20110420
  Receipt Date: 20110405
  Transmission Date: 20111010
  Serious: Yes (Congenital Anomaly, Other)
  Sender: FDA-Public Use
  Company Number: AUR-APU-2011-01218

PATIENT
  Sex: Male

DRUGS (4)
  1. PEGINTERFERON ALPHA [Suspect]
     Dosage: 80MCG-QW-TRANSPLACENTAL
     Route: 064
     Dates: start: 20090612, end: 20100507
  2. RIBAVIRIN [Suspect]
     Dosage: TRANSPLACENTAL
     Route: 064
     Dates: start: 20090612, end: 20100514
  3. ZYRTEC [Concomitant]
  4. PRILOSEC (80MG) [Concomitant]

REACTIONS (5)
  - PREMATURE BABY [None]
  - FOETAL TOBACCO EXPOSURE [None]
  - UMBILICAL CORD VASCULAR DISORDER [None]
  - MATERNAL DRUGS AFFECTING FOETUS [None]
  - CAESAREAN SECTION [None]
